FAERS Safety Report 5236952-X (Version None)
Quarter: 2007Q1

REPORT INFORMATION
  Report Type: 
  Country: None (occurrence: None)
  Receive Date: 20070213
  Receipt Date: 20070201
  Transmission Date: 20070707
  Serious: Yes (Life-Threatening, Hospitalization)
  Sender: FDA-Public Use
  Company Number: FRWYE466101FEB07

PATIENT
  Age: 93 Year
  Sex: Female

DRUGS (6)
  1. EFFEXOR [Suspect]
     Indication: DYSTHYMIC DISORDER
     Route: 048
     Dates: start: 20060809, end: 20061010
  2. CORDARONE [Concomitant]
     Indication: ARRHYTHMIA
     Route: 048
  3. LASIX [Concomitant]
     Indication: ESSENTIAL HYPERTENSION
     Route: 048
  4. CALCIPARINE [Suspect]
     Route: 058
     Dates: start: 20060918, end: 20061015
  5. PREPACOL [Concomitant]
     Route: 048
  6. NEXIUM [Concomitant]
     Route: 048

REACTIONS (6)
  - BONE PAIN [None]
  - HAEMATOMA [None]
  - INDURATION [None]
  - OEDEMA PERIPHERAL [None]
  - PAIN IN EXTREMITY [None]
  - SKIN WARM [None]
